FAERS Safety Report 6712420-0 (Version None)
Quarter: 2010Q2

REPORT INFORMATION
  Report Type: 
  Country: None (occurrence: None)
  Receive Date: 20100506
  Receipt Date: 20100504
  Transmission Date: 20101027
  Serious: Yes (Hospitalization)
  Sender: FDA-Public Use
  Company Number: US-ASTRAZENECA-2007UW14359

PATIENT
  Age: 8798 Day
  Sex: Female

DRUGS (15)
  1. SEROQUEL [Suspect]
     Indication: DEPRESSION
     Route: 048
     Dates: start: 20050501, end: 20060115
  2. SEROQUEL [Suspect]
     Dosage: 100 MG
     Route: 048
     Dates: start: 20050720
  3. ZOLOFT [Concomitant]
     Dosage: 100 MG DISPENSED, 50 MG Q AM
     Dates: start: 20041001
  4. LORAZEPAM [Concomitant]
     Dosage: 1 MG
     Dates: start: 20050720
  5. METFORMIN HCL [Concomitant]
     Dosage: 500 MG
     Dates: start: 20051115
  6. LANTUS [Concomitant]
     Dosage: 10-25 UNITS
     Route: 058
     Dates: start: 20060101
  7. ATENOLOL [Concomitant]
     Indication: SINUS TACHYCARDIA
     Dosage: 25-50 MG
     Dates: start: 20060407
  8. PHENERGAN [Concomitant]
     Dosage: 25-MG Q 6H PRN
     Route: 048
  9. LYRICA [Concomitant]
  10. CYMBALTA [Concomitant]
  11. SOMA [Concomitant]
  12. CLONAZEPAM [Concomitant]
  13. PERCOCET [Concomitant]
  14. ZOFRAN [Concomitant]
  15. PROMETHAZINE [Concomitant]

REACTIONS (8)
  - ABDOMINAL PAIN [None]
  - CHOLECYSTITIS CHRONIC [None]
  - CHOLELITHIASIS [None]
  - CROHN'S DISEASE [None]
  - GALLBLADDER DISORDER [None]
  - GASTROINTESTINAL DISORDER [None]
  - TYPE 2 DIABETES MELLITUS [None]
  - WEIGHT INCREASED [None]
